FAERS Safety Report 6371363-5 (Version None)
Quarter: 2009Q3

REPORT INFORMATION
  Report Type: 
  Country: None (occurrence: None)
  Receive Date: 20090923
  Receipt Date: 20090921
  Transmission Date: 20100115
  Serious: Yes (Hospitalization)
  Sender: FDA-Public Use
  Company Number: ES-WYE-H10751409

PATIENT
  Sex: Male
  Weight: 63 kg

DRUGS (4)
  1. RAPAMUNE [Suspect]
     Indication: PROPHYLAXIS AGAINST TRANSPLANT REJECTION
     Route: 048
     Dates: start: 20071112
  2. SIMVASTATIN [Concomitant]
     Indication: DYSLIPIDAEMIA
  3. ACTOL [Concomitant]
     Indication: ANAEMIA
  4. ATENOLOL [Concomitant]
     Indication: HYPERTENSION

REACTIONS (1)
  - UPPER GASTROINTESTINAL HAEMORRHAGE [None]
